FAERS Safety Report 21786250 (Version 1)
Quarter: 2022Q4

REPORT INFORMATION
  Report Type: Spontaneous
  Country: GB (occurrence: GB)
  Receive Date: 20221228
  Receipt Date: 20221228
  Transmission Date: 20230113
  Serious: Yes (Other)
  Sender: FDA-Public Use
  Company Number: GB-MHRA-TPP1324606C967763YC1670581910280

PATIENT
  Age: 68 Year
  Sex: Female
  Weight: 91 kg

DRUGS (15)
  1. AMLODIPINE [Suspect]
     Active Substance: AMLODIPINE BESYLATE
     Indication: Product used for unknown indication
     Dosage: 5 MILLIGRAM, DAILY
     Route: 065
     Dates: start: 20221201
  2. Conotrane [Concomitant]
     Indication: Product used for unknown indication
     Dosage: APPLY AS NEEDED TO AFFECTED AREAS AS A BARRIER ...
     Route: 065
     Dates: start: 20211018
  3. DIHYDROCODEINE [Concomitant]
     Active Substance: DIHYDROCODEINE
     Indication: Product used for unknown indication
     Dosage: 1 DOSAGE FORM, TWO TIMES A DAY ~( IN CONJUNCTION WITH PATCH)
     Dates: start: 20211018
  4. CALCIUM CARBONATE\CHOLECALCIFEROL [Concomitant]
     Active Substance: CALCIUM CARBONATE\CHOLECALCIFEROL
     Indication: Product used for unknown indication
     Dosage: 1 DOSAGE FORM, TWO TIMES A DAY
     Route: 065
     Dates: start: 20211018
  5. FENBID [Concomitant]
     Indication: Product used for unknown indication
     Dosage: UNK, LIGHTLY RUB INTO THE AFFECTED AREA UNTIL ABSORB...
     Route: 065
     Dates: start: 20211018
  6. BECLOMETHASONE\FORMOTEROL [Concomitant]
     Active Substance: BECLOMETHASONE\FORMOTEROL
     Indication: Product used for unknown indication
     Dosage: 2 DOSAGE FORM, TWO TIMES A DAY (PUFFS)
     Route: 065
     Dates: start: 20211018
  7. LANSOPRAZOLE [Concomitant]
     Active Substance: LANSOPRAZOLE
     Indication: Product used for unknown indication
     Dosage: 1 DOSAGE FORM, ONCE A DAY (~WHEN REQUIRED)
     Route: 065
     Dates: start: 20211018
  8. LEVOTHYROXINE [Concomitant]
     Active Substance: LEVOTHYROXINE
     Indication: Product used for unknown indication
     Dosage: 1 DOSAGE FORM, ONCE A DAY (BEFORE BREAKFAST)
     Route: 065
     Dates: start: 20211018
  9. MEBEVERINE HYDROCHLORIDE [Concomitant]
     Active Substance: MEBEVERINE HYDROCHLORIDE
     Indication: Product used for unknown indication
     Dosage: 1 DOSAGE FORM, 3 TIMES A DAY
     Route: 065
     Dates: start: 20211018
  10. MIRTAZAPINE [Concomitant]
     Active Substance: MIRTAZAPINE
     Indication: Product used for unknown indication
     Dosage: 1 DOSAGE FORM, ONCE A DAY (AT NIGHT)
     Route: 065
     Dates: start: 20211018
  11. ACETAMINOPHEN [Concomitant]
     Active Substance: ACETAMINOPHEN
     Indication: Product used for unknown indication
     Dosage: TAKE ONE OR TWO FOUR TIMES A DAY, MAXIMUM 8 IN ...
     Route: 065
     Dates: start: 20211018
  12. BUPRENORPHINE [Concomitant]
     Active Substance: BUPRENORPHINE
     Indication: Product used for unknown indication
     Dosage: 1 DOSAGE FORM (APPLY ONE PATCH EVERY 7DAYS. FIRMLY PRESS WITH ...)
     Route: 065
     Dates: start: 20211020
  13. ALBUTEROL [Concomitant]
     Active Substance: ALBUTEROL
     Indication: Product used for unknown indication
     Dosage: UNK UNK, AS NECESSARY (INHALE ONE OR TWO PUFFS WHEN REQUIRED FOR SHORT...  )
     Route: 055
     Dates: start: 20220926
  14. ALBUTEROL [Concomitant]
     Active Substance: ALBUTEROL
     Indication: Product used for unknown indication
     Dosage: UNK UNK, AS NECESSARY (INHALE ONE OR TWO PUFFS WHEN REQUIRED FOR SHORT...)
     Route: 055
     Dates: start: 20211018, end: 20220926
  15. SIMVASTATIN [Concomitant]
     Active Substance: SIMVASTATIN
     Indication: Product used for unknown indication
     Dosage: 1 DOSAGE FORM, ONCE A DAY (AT NIGHT)
     Route: 065
     Dates: start: 20211018

REACTIONS (2)
  - Anuria [Recovered/Resolved]
  - Urinary retention [Unknown]

NARRATIVE: CASE EVENT DATE: 20221209
